FAERS Safety Report 6637983-5 (Version None)
Quarter: 2010Q1

REPORT INFORMATION
  Report Type: 
  Country: None (occurrence: None)
  Receive Date: 20100317
  Receipt Date: 20100304
  Transmission Date: 20100710
  Serious: No
  Sender: FDA-Public Use
  Company Number: US-B.I. PHARMACEUTICALS,INC./RIDGEFIELD-2010-BP-00641BP

PATIENT
  Sex: Female
  Weight: 68.04 kg

DRUGS (5)
  1. SPIRIVA [Suspect]
     Indication: CHRONIC OBSTRUCTIVE PULMONARY DISEASE
     Dosage: 18 MCG
     Route: 055
     Dates: start: 20080101
  2. SYNTHROID [Concomitant]
     Indication: THYROID DISORDER
  3. BENICAR [Concomitant]
     Indication: HYPERTENSION
  4. ECOTRIN [Concomitant]
     Indication: PROPHYLAXIS
  5. PREMARIN [Concomitant]

REACTIONS (1)
  - DRY MOUTH [None]
